FAERS Safety Report 24543945 (Version 1)
Quarter: 2024Q4

REPORT INFORMATION
  Report Type: Spontaneous
  Country: AR (occurrence: AR)
  Receive Date: 20241024
  Receipt Date: 20241024
  Transmission Date: 20250114
  Serious: Yes (Other)
  Sender: AMGEN
  Company Number: AR-AMGEN-ARGSP2024206175

PATIENT
  Age: 58 Year
  Sex: Female

DRUGS (1)
  1. PROLIA [Suspect]
     Active Substance: DENOSUMAB
     Indication: Complex regional pain syndrome
     Dosage: UNK
     Route: 065

REACTIONS (3)
  - Spinal fracture [Unknown]
  - Off label use [Unknown]
  - Therapy cessation [Unknown]
